FAERS Safety Report 11275138 (Version 1)
Quarter: 2015Q3

REPORT INFORMATION
  Report Type: Spontaneous
  Country: CA (occurrence: None)
  Receive Date: 20150714
  Receipt Date: 20150714
  Transmission Date: 20151125
  Serious: Yes (Hospitalization)
  Sender: FDA-Public Use
  Company Number: None

PATIENT
  Age: 76 Year
  Sex: Male
  Weight: 89.8 kg

DRUGS (2)
  1. CASODEX [Suspect]
     Active Substance: BICALUTAMIDE
     Dates: end: 20150506
  2. ZOLADEX [Suspect]
     Active Substance: GOSERELIN ACETATE
     Dates: end: 20150311

REACTIONS (2)
  - Atrial fibrillation [None]
  - Blood alcohol increased [None]

NARRATIVE: CASE EVENT DATE: 20150603
